FAERS Safety Report 6897710-3 (Version None)
Quarter: 2010Q3

REPORT INFORMATION
  Report Type: 
  Country: None (occurrence: None)
  Receive Date: 20100802
  Receipt Date: 20070725
  Transmission Date: 20110219
  Serious: Yes (Other)
  Sender: FDA-Public Use
  Company Number: US-PFIZER INC-2007031099

PATIENT
  Sex: Female

DRUGS (8)
  1. LYRICA [Suspect]
     Indication: LUMBAR RADICULOPATHY
  2. DEPO-MEDROL [Suspect]
     Route: 008
  3. ANTIHYPERTENSIVES [Concomitant]
  4. NORVASC [Concomitant]
  5. LOZOL [Concomitant]
  6. AMBIEN [Concomitant]
  7. ACETYLSALICYLIC ACID SRT [Concomitant]
  8. INDERAL LA [Concomitant]

REACTIONS (2)
  - BLOOD PRESSURE INCREASED [None]
  - FLUSHING [None]
